FAERS Safety Report 8967246 (Version 1)
Quarter: 2012Q4

REPORT INFORMATION
  Report Type: 
  Country: US (occurrence: US)
  Receive Date: 20121214
  Receipt Date: 20121214
  Transmission Date: 20130627
  Serious: No
  Sender: FDA-Public Use
  Company Number: US-GLAXOSMITHKLINE-A0969318A

PATIENT
  Age: 71 Year
  Sex: Female

DRUGS (6)
  1. FLUTICASONE PROPIONATE [Suspect]
     Indication: MULTIPLE ALLERGIES
     Dosage: 4SPR Per day
     Route: 045
     Dates: start: 20120305
  2. SPIRIVA [Suspect]
     Dosage: 2PUFF Per day
     Route: 055
     Dates: start: 20120305
  3. VENTOLIN [Concomitant]
  4. LEVOTHYROXINE [Concomitant]
  5. CITALOPRAM [Concomitant]
  6. DICYCLOMINE [Concomitant]

REACTIONS (3)
  - Burning sensation [Unknown]
  - Rhinorrhoea [Unknown]
  - Dysgeusia [Unknown]
